FAERS Safety Report 4377805-9 (Version None)
Quarter: 2004Q2

REPORT INFORMATION
  Report Type: 
  Country: None (occurrence: None)
  Receive Date: 20040615
  Receipt Date: 20040615
  Transmission Date: 20050107
  Serious: Yes (Hospitalization)
  Sender: FDA-Public Use
  Company Number: None

PATIENT
  Sex: Male
  Weight: 83 kg

DRUGS (6)
  1. IRESSA [Suspect]
     Indication: METASTASIS
     Dosage: 250 MG DAILY O
     Dates: start: 20040525
  2. IRESSA [Suspect]
     Indication: OESOPHAGEAL CARCINOMA
     Dosage: 250 MG DAILY O
     Dates: start: 20040525
  3. CARDURA [Suspect]
     Indication: HYPERTENSION
     Dosage: 4 MG TID PO
     Route: 048
  4. ZIAC [Suspect]
     Dosage: DAILY PO
     Route: 048
  5. LOTREL [Suspect]
     Dosage: MG DAILY PO
     Route: 048
  6. PREVACID [Suspect]
     Indication: GASTROOESOPHAGEAL REFLUX DISEASE
     Dosage: 30 MG DAILY PO
     Route: 046

REACTIONS (1)
  - BACK PAIN [None]
